FAERS Safety Report 5402766-0 (Version None)
Quarter: 2007Q3

REPORT INFORMATION
  Report Type: 
  Country: None (occurrence: None)
  Receive Date: 20070730
  Receipt Date: 20070726
  Transmission Date: 20080115
  Serious: Yes (Hospitalization)
  Sender: FDA-Public Use
  Company Number: 2007SP012396

PATIENT
  Age: 56 Year
  Sex: Female

DRUGS (3)
  1. TEMOZOLOMIDE [Suspect]
     Indication: GLIOBLASTOMA
     Dosage: 120 MG,QD;PO, 225 MG;QD;PO
     Route: 048
     Dates: start: 20070301, end: 20070505
  2. TEMOZOLOMIDE [Suspect]
     Indication: GLIOBLASTOMA
     Dosage: 120 MG,QD;PO, 225 MG;QD;PO
     Route: 048
     Dates: start: 20070301
  3. METHYLPREDNISOLONE [Suspect]
     Indication: GLIOBLASTOMA
     Dosage: 96, MG, QD;PO
     Route: 048
     Dates: start: 20070501

REACTIONS (1)
  - INTERSTITIAL LUNG DISEASE [None]
